FAERS Safety Report 11330684 (Version 3)
Quarter: 2015Q4

REPORT INFORMATION
  Report Type: Spontaneous
  Country: US (occurrence: US)
  Receive Date: 20150803
  Receipt Date: 20151124
  Transmission Date: 20160304
  Serious: Yes (Other)
  Sender: FDA-Public Use
  Company Number: US-GLAXOSMITHKLINE-US2015GSK109227

PATIENT
  Age: 86 Year
  Sex: Female

DRUGS (2)
  1. ADVAIR DISKUS [Suspect]
     Active Substance: FLUTICASONE PROPIONATE\SALMETEROL XINAFOATE
     Dosage: 100/50 MCG 1 PUFF(S), QD
     Route: 065
  2. ADVAIR DISKUS [Suspect]
     Active Substance: FLUTICASONE PROPIONATE\SALMETEROL XINAFOATE
     Indication: ASTHMA
     Dosage: UNK, U
     Route: 065
     Dates: start: 2005

REACTIONS (7)
  - Bedridden [Unknown]
  - Underdose [Not Recovered/Not Resolved]
  - Pneumonia [Unknown]
  - Inappropriate schedule of drug administration [Not Recovered/Not Resolved]
  - Disability [Not Recovered/Not Resolved]
  - Road traffic accident [Recovered/Resolved]
  - Spinal fracture [Not Recovered/Not Resolved]
